FAERS Safety Report 7859207-3 (Version None)
Quarter: 2011Q4

REPORT INFORMATION
  Report Type: 
  Country: None (occurrence: None)
  Receive Date: 20111027
  Receipt Date: 20111027
  Transmission Date: 20120403
  Serious: Yes (Hospitalization, Other)
  Sender: FDA-Public Use
  Company Number: None

PATIENT
  Age: 62 Year
  Sex: Female
  Weight: 131.99 kg

DRUGS (1)
  1. VIIBRYD [Suspect]
     Indication: MAJOR DEPRESSION
     Dosage: CURRENT 20 MG
     Route: 048
     Dates: start: 20111015, end: 20111025

REACTIONS (10)
  - FATIGUE [None]
  - VOMITING [None]
  - DRUG INEFFECTIVE [None]
  - DIARRHOEA [None]
  - MIDDLE INSOMNIA [None]
  - AMNESIA [None]
  - SEROTONIN SYNDROME [None]
  - INSOMNIA [None]
  - CRYING [None]
  - FEAR [None]
